FAERS Safety Report 7744095-6 (Version None)
Quarter: 2011Q3

REPORT INFORMATION
  Report Type: 
  Country: None (occurrence: None)
  Receive Date: 20110912
  Receipt Date: 20110831
  Transmission Date: 20111222
  Serious: Yes (Life-Threatening, Other)
  Sender: FDA-Public Use
  Company Number: JP-CELGENEUS-087-CCAZA-11081299

PATIENT
  Sex: Female

DRUGS (13)
  1. AZACITIDINE [Suspect]
     Indication: MYELODYSPLASTIC SYNDROME
     Dosage: 100 MILLIGRAM
     Route: 041
     Dates: start: 20110323
  2. DIFLUCAN [Concomitant]
     Route: 065
     Dates: start: 20110516, end: 20110728
  3. AZACITIDINE [Suspect]
     Dosage: 37.5 MILLIGRAM/SQ. METER
     Route: 041
     Dates: start: 20110719, end: 20110722
  4. AZACITIDINE [Suspect]
     Dosage: 37.5 MILLIGRAM/SQ. METER
     Route: 041
     Dates: start: 20110725, end: 20110727
  5. SELBEX [Concomitant]
     Route: 065
  6. LEVOFLOXACIN [Concomitant]
     Route: 065
     Dates: start: 20110516, end: 20110614
  7. ISOSORBIDE DINITRATE [Concomitant]
     Route: 065
  8. LANSOPRAZOLE [Concomitant]
     Route: 065
     Dates: start: 20110516
  9. DOGMATYL [Concomitant]
     Route: 065
  10. ALLOPURINOL [Concomitant]
     Route: 065
     Dates: start: 20110523, end: 20110630
  11. AZACITIDINE [Suspect]
     Dosage: 70 MILLIGRAM/SQ. METER
     Route: 041
     Dates: start: 20110523, end: 20110531
  12. CRESTOR [Concomitant]
     Route: 065
  13. DILTIAZEM HCL [Concomitant]
     Route: 065

REACTIONS (2)
  - PNEUMONIA [None]
  - PLATELET COUNT DECREASED [None]
